FAERS Safety Report 14795134 (Version 2)
Quarter: 2019Q2

REPORT INFORMATION
  Report Type: Spontaneous
  Country: US (occurrence: US)
  Receive Date: 20180423
  Receipt Date: 20190412
  Transmission Date: 20190711
  Serious: Yes (Other)
  Sender: FDA-Public Use
  Company Number: US-ASTRAZENECA-2018SE52213

PATIENT
  Age: 27819 Day
  Sex: Male
  Weight: 90 kg

DRUGS (31)
  1. DEXILANT [Suspect]
     Active Substance: DEXLANSOPRAZOLE
     Route: 065
  2. CLINDAMYCIN. [Concomitant]
     Active Substance: CLINDAMYCIN
  3. PHENAZOPYRIDINE. [Concomitant]
     Active Substance: PHENAZOPYRIDINE
  4. PRILOSEC [Suspect]
     Active Substance: OMEPRAZOLE MAGNESIUM
     Route: 048
  5. PRILOSEC OTC [Suspect]
     Active Substance: OMEPRAZOLE MAGNESIUM
     Route: 048
  6. CEPHALEXIN. [Concomitant]
     Active Substance: CEPHALEXIN
  7. LASIX [Concomitant]
     Active Substance: FUROSEMIDE
  8. LEVOFLOXACIN. [Concomitant]
     Active Substance: LEVOFLOXACIN
  9. NEXIUM [Suspect]
     Active Substance: ESOMEPRAZOLE MAGNESIUM
     Dosage: GENERIC
     Route: 065
     Dates: start: 20150411, end: 20180920
  10. PREVACID [Suspect]
     Active Substance: LANSOPRAZOLE
     Route: 065
  11. PRAVASTATIN. [Concomitant]
     Active Substance: PRAVASTATIN
  12. PHENAZOPYRIDINE. [Concomitant]
     Active Substance: PHENAZOPYRIDINE
  13. TERAZOSIN [Concomitant]
     Active Substance: TERAZOSIN\TERAZOSIN HYDROCHLORIDE
  14. ONDANSETRON [Concomitant]
     Active Substance: ONDANSETRON
  15. ACIPHEX [Suspect]
     Active Substance: RABEPRAZOLE SODIUM
     Route: 065
  16. LOSARTAN. [Concomitant]
     Active Substance: LOSARTAN
  17. CHLORHEXIDINE [Concomitant]
     Active Substance: CHLORHEXIDINE
  18. DICYCLOMINE [Concomitant]
     Active Substance: DICYCLOMINE HYDROCHLORIDE
  19. PRAVASTATIN. [Concomitant]
     Active Substance: PRAVASTATIN
  20. CLINDAMYCIN. [Concomitant]
     Active Substance: CLINDAMYCIN
  21. NEXIUM [Suspect]
     Active Substance: ESOMEPRAZOLE MAGNESIUM
     Route: 048
     Dates: start: 2011, end: 2015
  22. NEXIUM [Suspect]
     Active Substance: ESOMEPRAZOLE MAGNESIUM
     Route: 048
     Dates: start: 20111126, end: 20150121
  23. NEXIUM 24HR [Suspect]
     Active Substance: ESOMEPRAZOLE MAGNESIUM
     Route: 048
  24. VICODIN [Concomitant]
     Active Substance: ACETAMINOPHEN\HYDROCODONE BITARTRATE
  25. FUROSEMIDE. [Concomitant]
     Active Substance: FUROSEMIDE
  26. METRONIDAZOLE. [Concomitant]
     Active Substance: METRONIDAZOLE
  27. CEPHALEXIN. [Concomitant]
     Active Substance: CEPHALEXIN
  28. NEXIUM [Suspect]
     Active Substance: ESOMEPRAZOLE MAGNESIUM
     Route: 048
  29. PROTONIX [Suspect]
     Active Substance: PANTOPRAZOLE SODIUM
     Route: 065
  30. PROTONIX [Suspect]
     Active Substance: PANTOPRAZOLE SODIUM
     Dosage: GENERIC (PANTOPRAZOLE)
     Route: 065
  31. TAMIFLU [Concomitant]
     Active Substance: OSELTAMIVIR PHOSPHATE

REACTIONS (4)
  - Acute kidney injury [Unknown]
  - Chronic kidney disease [Not Recovered/Not Resolved]
  - Tubulointerstitial nephritis [Unknown]
  - End stage renal disease [Unknown]

NARRATIVE: CASE EVENT DATE: 20140205
